FAERS Safety Report 6702755-X (Version None)
Quarter: 2010Q2

REPORT INFORMATION
  Report Type: 
  Country: None (occurrence: None)
  Receive Date: 20100428
  Receipt Date: 20100413
  Transmission Date: 20101027
  Serious: Yes (Hospitalization)
  Sender: FDA-Public Use
  Company Number: 2010001291

PATIENT
  Age: 56 Year
  Sex: Male

DRUGS (34)
  1. ERLOTINIB        / PLACEBO / ERLOTINIB HCL)    (TABLET) [Suspect]
     Indication: HEPATIC NEOPLASM MALIGNANT
     Dosage: 150 MG, QD,ORAL, 100 MG,QD,ORAL
     Route: 048
     Dates: start: 20090922, end: 20091012
  2. ERLOTINIB        / PLACEBO / ERLOTINIB HCL)    (TABLET) [Suspect]
     Indication: HEPATIC NEOPLASM MALIGNANT
     Dosage: 150 MG, QD,ORAL, 100 MG,QD,ORAL
     Route: 048
     Dates: start: 20091013, end: 20091102
  3. ERLOTINIB        / PLACEBO / ERLOTINIB HCL)    (TABLET) [Suspect]
     Indication: HEPATIC NEOPLASM MALIGNANT
     Dosage: 150 MG, QD,ORAL, 100 MG,QD,ORAL
     Route: 048
     Dates: start: 20091103, end: 20091123
  4. ERLOTINIB        / PLACEBO / ERLOTINIB HCL)    (TABLET) [Suspect]
     Indication: HEPATIC NEOPLASM MALIGNANT
     Dosage: 150 MG, QD,ORAL, 100 MG,QD,ORAL
     Route: 048
     Dates: start: 20091124, end: 20091214
  5. ERLOTINIB        / PLACEBO / ERLOTINIB HCL)    (TABLET) [Suspect]
     Indication: HEPATIC NEOPLASM MALIGNANT
     Dosage: 150 MG, QD,ORAL, 100 MG,QD,ORAL
     Route: 048
     Dates: start: 20091215, end: 20100104
  6. ERLOTINIB        / PLACEBO / ERLOTINIB HCL)    (TABLET) [Suspect]
     Indication: HEPATIC NEOPLASM MALIGNANT
     Dosage: 150 MG, QD,ORAL, 100 MG,QD,ORAL
     Route: 048
     Dates: start: 20100112, end: 20100125
  7. ERLOTINIB        / PLACEBO / ERLOTINIB HCL)    (TABLET) [Suspect]
     Indication: HEPATIC NEOPLASM MALIGNANT
     Dosage: 150 MG, QD,ORAL, 100 MG,QD,ORAL
     Route: 048
     Dates: start: 20100126, end: 20100208
  8. ERLOTINIB        / PLACEBO / ERLOTINIB HCL)    (TABLET) [Suspect]
     Indication: HEPATIC NEOPLASM MALIGNANT
     Dosage: 150 MG, QD,ORAL, 100 MG,QD,ORAL
     Route: 048
     Dates: start: 20100210, end: 20100210
  9. ERLOTINIB        / PLACEBO / ERLOTINIB HCL)    (TABLET) [Suspect]
     Indication: HEPATIC NEOPLASM MALIGNANT
     Dosage: 150 MG, QD,ORAL, 100 MG,QD,ORAL
     Route: 048
     Dates: start: 20100216, end: 20100222
  10. ERLOTINIB        / PLACEBO / ERLOTINIB HCL)    (TABLET) [Suspect]
     Indication: HEPATIC NEOPLASM MALIGNANT
     Dosage: 150 MG, QD,ORAL, 100 MG,QD,ORAL
     Route: 048
     Dates: start: 20100224, end: 20100308
  11. SORAFENIB [Suspect]
     Indication: HEPATIC NEOPLASM MALIGNANT
     Dosage: 800 MG,QD,ORALM, 400 MG,QD,ORAL
     Route: 048
     Dates: start: 20090922, end: 20091012
  12. SORAFENIB [Suspect]
     Indication: HEPATIC NEOPLASM MALIGNANT
     Dosage: 800 MG,QD,ORALM, 400 MG,QD,ORAL
     Route: 048
     Dates: start: 20091013, end: 20091102
  13. SORAFENIB [Suspect]
     Indication: HEPATIC NEOPLASM MALIGNANT
     Dosage: 800 MG,QD,ORALM, 400 MG,QD,ORAL
     Route: 048
     Dates: start: 20091103, end: 20091123
  14. SORAFENIB [Suspect]
     Indication: HEPATIC NEOPLASM MALIGNANT
     Dosage: 800 MG,QD,ORALM, 400 MG,QD,ORAL
     Route: 048
     Dates: start: 20091124, end: 20091214
  15. SORAFENIB [Suspect]
     Indication: HEPATIC NEOPLASM MALIGNANT
     Dosage: 800 MG,QD,ORALM, 400 MG,QD,ORAL
     Route: 048
     Dates: start: 20091215, end: 20100104
  16. SORAFENIB [Suspect]
     Indication: HEPATIC NEOPLASM MALIGNANT
     Dosage: 800 MG,QD,ORALM, 400 MG,QD,ORAL
     Route: 048
     Dates: start: 20100112, end: 20100125
  17. SORAFENIB [Suspect]
     Indication: HEPATIC NEOPLASM MALIGNANT
     Dosage: 800 MG,QD,ORALM, 400 MG,QD,ORAL
     Route: 048
     Dates: start: 20100126, end: 20100208
  18. SORAFENIB [Suspect]
     Indication: HEPATIC NEOPLASM MALIGNANT
     Dosage: 800 MG,QD,ORALM, 400 MG,QD,ORAL
     Route: 048
     Dates: start: 20100209, end: 20100209
  19. SORAFENIB [Suspect]
     Indication: HEPATIC NEOPLASM MALIGNANT
     Dosage: 800 MG,QD,ORALM, 400 MG,QD,ORAL
     Route: 048
     Dates: start: 20100210, end: 20100210
  20. SORAFENIB [Suspect]
     Indication: HEPATIC NEOPLASM MALIGNANT
     Dosage: 800 MG,QD,ORALM, 400 MG,QD,ORAL
     Route: 048
     Dates: start: 20100216, end: 20100222
  21. SORAFENIB [Suspect]
     Indication: HEPATIC NEOPLASM MALIGNANT
     Dosage: 800 MG,QD,ORALM, 400 MG,QD,ORAL
     Route: 048
     Dates: start: 20100224, end: 20100224
  22. SORAFENIB [Suspect]
     Indication: HEPATIC NEOPLASM MALIGNANT
     Dosage: 800 MG,QD,ORALM, 400 MG,QD,ORAL
     Route: 048
     Dates: start: 20100225, end: 20100309
  23. TRAMADOL HCL [Concomitant]
  24. CO-CODAMOL (PANADEINE CO) [Concomitant]
  25. RANITIDNE (RANITIDINE) [Concomitant]
  26. LANSOPRAZOLE [Concomitant]
  27. NITROFURANTOIN [Concomitant]
  28. LOPERADMIDE (LOPERAMIDE) [Concomitant]
  29. THIAMINE (THIAMINE) [Concomitant]
  30. FOOD SUPPLEMENTS [Concomitant]
  31. PEPPERMINT CHEWS (PEPPERMINT INDIGESTION TABLETS) [Concomitant]
  32. HYOSCINE HBR HYT [Concomitant]
  33. DICLOFENAC SODIUM [Concomitant]
  34. OMEPRAZOLE [Concomitant]

REACTIONS (2)
  - ABDOMINAL DISTENSION [None]
  - ASCITES [None]
